FAERS Safety Report 8402262-2 (Version None)
Quarter: 2012Q2

REPORT INFORMATION
  Report Type: 
  Country: None (occurrence: None)
  Receive Date: 20120529
  Receipt Date: 20040203
  Transmission Date: 20120825
  Serious: Yes (Life-Threatening, Hospitalization)
  Sender: FDA-Public Use
  Company Number: 02100-JPN-03-0288

PATIENT
  Age: 93 Year
  Sex: Female
  Weight: 50 kg

DRUGS (11)
  1. MEBALOTIN (PRAVASTATIN SODIUM) TABLET [Concomitant]
  2. HYSERENIN (VALPROATE SODIUM) GRANULE [Concomitant]
  3. NORVASC [Concomitant]
  4. LANSOPRAZOLE [Concomitant]
  5. BLOPRESS (CANDESARTAN CILEXETIL) TABLET [Concomitant]
  6. PLETAL [Suspect]
     Indication: MYOCARDIAL INFARCTION
     Dosage: 100 MG, QD, ORAL
     Route: 048
     Dates: start: 20030101, end: 20030707
  7. BEHYD (BENZYLHYDROCHLORTHIAZIDE) TABLET [Concomitant]
  8. MAGTECT (ALUMINUM HYDROXIDE MAGNESIUM HYDROXIDE) LIQUID [Concomitant]
  9. RINDERON-VG (GENTAMICIN SULFATE, BETAMETHASONE VALERATE) OINTMENT [Concomitant]
  10. FRANDOL (ISOSORBIDE DINITRATE) TAPE (INCLUDING POULTICE) [Concomitant]
  11. LASIX [Concomitant]

REACTIONS (7)
  - ATRIOVENTRICULAR BLOCK COMPLETE [None]
  - PARTIAL SEIZURES [None]
  - CEREBRAL INFARCTION [None]
  - SUBDURAL HAEMATOMA [None]
  - ACUTE MYOCARDIAL INFARCTION [None]
  - LOSS OF CONSCIOUSNESS [None]
  - FALL [None]
